FAERS Safety Report 12207188 (Version 2)
Quarter: 2016Q1

REPORT INFORMATION
  Report Type: Spontaneous
  Country: US (occurrence: US)
  Receive Date: 20160324
  Receipt Date: 20160324
  Transmission Date: 20160526
  Serious: Yes (Hospitalization, Other)
  Sender: FDA-Public Use
  Company Number: US-ACTAVIS-2016-06357

PATIENT
  Age: 46 Year
  Sex: Male

DRUGS (9)
  1. CISPLATIN (UNKNOWN) [Suspect]
     Active Substance: CISPLATIN
     Indication: CHEMOTHERAPY
     Dosage: COMPLETED A CYCLE
     Route: 065
  2. FLUCONAZOLE (UNKNOWN) [Suspect]
     Active Substance: FLUCONAZOLE
     Indication: PROPHYLAXIS
     Dosage: UNK
     Route: 065
  3. MESNA. [Concomitant]
     Active Substance: MESNA
     Indication: CHEMOTHERAPY
     Dosage: COMPLETED A CYCLE
     Route: 065
  4. CYCLOPHOSPHAMIDE. [Suspect]
     Active Substance: CYCLOPHOSPHAMIDE
     Indication: CHEMOTHERAPY
     Dosage: COMPLETED A CYCLE
     Route: 065
  5. LEVOFLOXACIN. [Concomitant]
     Active Substance: LEVOFLOXACIN
     Indication: PROPHYLAXIS
     Dosage: UNK
     Route: 065
  6. ETOPOSIDE (WATSON LABORATORIES) [Suspect]
     Active Substance: ETOPOSIDE
     Indication: CHEMOTHERAPY
     Dosage: COMPLETED A CYCLE
     Route: 065
  7. DEXAMETHASONE. [Concomitant]
     Active Substance: DEXAMETHASONE
     Indication: CHEMOTHERAPY
     Dosage: COMPLETED A CYCLE
     Route: 065
  8. DOXORUBICIN HYDROCHLORIDE (ACTAVIS INC) [Suspect]
     Active Substance: DOXORUBICIN HYDROCHLORIDE
     Indication: CHEMOTHERAPY
     Dosage: COMPLETED A CYCLE
     Route: 065
  9. ACYCLOVIR                          /00587301/ [Concomitant]
     Active Substance: ACYCLOVIR
     Indication: PROPHYLAXIS
     Dosage: UNK
     Route: 065

REACTIONS (3)
  - Fusarium infection [Recovered/Resolved]
  - Drug resistance [Unknown]
  - Neutropenia [Unknown]
